FAERS Safety Report 8131542-3 (Version None)
Quarter: 2012Q1

REPORT INFORMATION
  Report Type: 
  Country: None (occurrence: None)
  Receive Date: 20120213
  Receipt Date: 20120202
  Transmission Date: 20120608
  Serious: Yes (Hospitalization)
  Sender: FDA-Public Use
  Company Number: JP-JNJFOC-20111108154

PATIENT
  Sex: Male
  Weight: 52 kg

DRUGS (17)
  1. REMICADE [Suspect]
     Indication: RHEUMATOID ARTHRITIS
     Dosage: TOTAL OF 2 INFUSIONS
     Route: 042
     Dates: start: 20110927
  2. LOXONIN [Concomitant]
     Indication: RHEUMATOID ARTHRITIS
     Route: 048
     Dates: start: 20110916
  3. ISONIAZID [Concomitant]
     Indication: PROPHYLAXIS
     Route: 048
     Dates: start: 20110816, end: 20111006
  4. CRESTOR [Concomitant]
     Indication: HYPERLIPIDAEMIA
     Route: 048
     Dates: start: 20110816
  5. RHEUMATREX [Suspect]
     Indication: RHEUMATOID ARTHRITIS
     Route: 048
  6. RHEUMATREX [Suspect]
     Route: 048
     Dates: start: 20110816
  7. SULFASALAZINE [Concomitant]
     Route: 065
  8. RHEUMATREX [Suspect]
     Route: 048
     Dates: start: 20110823, end: 20111006
  9. PREDNISOLONE [Suspect]
     Route: 048
     Dates: start: 20110927
  10. PYDOXAL [Concomitant]
     Indication: PROPHYLAXIS
     Route: 048
     Dates: start: 20110816, end: 20111006
  11. REMICADE [Suspect]
     Route: 042
     Dates: start: 20110909
  12. PREDNISOLONE [Suspect]
     Indication: RHEUMATOID ARTHRITIS
     Route: 048
     Dates: start: 20110823
  13. PREDNISOLONE [Suspect]
     Route: 048
     Dates: start: 20110909
  14. PREDNISOLONE [Suspect]
     Route: 048
     Dates: start: 20110816
  15. FOLIC ACID [Concomitant]
     Indication: PROPHYLAXIS
     Route: 048
     Dates: start: 20110816, end: 20111006
  16. LANSOPRAZOLE [Concomitant]
     Indication: PROPHYLAXIS AGAINST GASTROINTESTINAL ULCER
     Route: 048
     Dates: start: 20110816
  17. RISEDRONATE SODIUM [Concomitant]
     Indication: OSTEOPOROSIS PROPHYLAXIS
     Route: 048
     Dates: start: 20110816

REACTIONS (3)
  - PNEUMOCYSTIS JIROVECI PNEUMONIA [None]
  - PNEUMONIA CHLAMYDIAL [None]
  - HYPOGAMMAGLOBULINAEMIA [None]
